FAERS Safety Report 5239657-4 (Version None)
Quarter: 2007Q1

REPORT INFORMATION
  Report Type: 
  Country: None (occurrence: None)
  Receive Date: 20070216
  Receipt Date: 20070212
  Transmission Date: 20070707
  Serious: Yes (Hospitalization)
  Sender: FDA-Public Use
  Company Number: FR-BRISTOL-MYERS SQUIBB COMPANY-13679410

PATIENT
  Sex: Female

DRUGS (1)
  1. KENACORT [Suspect]
     Indication: RHEUMATOID ARTHRITIS
     Route: 014

REACTIONS (4)
  - ANAPHYLACTIC SHOCK [None]
  - ASTHMA [None]
  - BLOOD PRESSURE DECREASED [None]
  - URTICARIA [None]
